FAERS Safety Report 10068671 (Version 1)
Quarter: 2014Q2

REPORT INFORMATION
  Report Type: Spontaneous
  Country: FR (occurrence: FR)
  Receive Date: 20140409
  Receipt Date: 20140409
  Transmission Date: 20141212
  Serious: Yes (Other)
  Sender: FDA-Public Use
  Company Number: FR-ASTRAZENECA-2014SE23588

PATIENT
  Sex: Female

DRUGS (2)
  1. XYLOCAINE WITH EPINEPHRINE [Suspect]
     Indication: EPIDURAL ANAESTHESIA
     Dosage: 9 ML OF LIDOCAINE AGUETTANT 2 PERCENT AND 9 ML OF XYLOCAINE WITH EPINEPHRINE 2 PERCENT
     Route: 008
     Dates: start: 20140103, end: 20140103
  2. XYLOCAINE WITH EPINEPHRINE [Suspect]
     Indication: EPIDURAL ANAESTHESIA
     Dosage: 3 ML OF XYLOCAINE WITH EPINEPHRINE 2 PERCENT
     Route: 008
     Dates: start: 20140103, end: 20140103

REACTIONS (2)
  - Anaesthetic complication neurological [Recovered/Resolved]
  - Drug ineffective [Recovered/Resolved]
